FAERS Safety Report 6594112-4 (Version None)
Quarter: 2010Q1

REPORT INFORMATION
  Report Type: 
  Country: None (occurrence: None)
  Receive Date: 20100222
  Receipt Date: 20100211
  Transmission Date: 20100710
  Serious: Yes (Hospitalization)
  Sender: FDA-Public Use
  Company Number: US-ROCHE-681085

PATIENT
  Sex: Female
  Weight: 148 kg

DRUGS (11)
  1. AVASTIN [Suspect]
     Indication: COLON CANCER METASTATIC
     Route: 042
     Dates: start: 20091204, end: 20091207
  2. AVASTIN [Suspect]
     Route: 042
     Dates: start: 20091231, end: 20100106
  3. XELODA [Concomitant]
     Dosage: XELODA 1000 MG BID ON 1 WEEK/ OFF 1 WEEK STARTED 6/09.
  4. CELEXA [Concomitant]
  5. PROTONIX [Concomitant]
  6. LOPRESSOR [Concomitant]
  7. ASPIRIN [Concomitant]
  8. ADVIT [Concomitant]
  9. POTASSIUM [Concomitant]
  10. CIPRO [Concomitant]
  11. MECLIZINE [Concomitant]

REACTIONS (2)
  - PANCREATITIS [None]
  - URINARY TRACT INFECTION [None]
